FAERS Safety Report 21194811 (Version 1)
Quarter: 2022Q3

REPORT INFORMATION
  Report Type: Spontaneous
  Country: CA (occurrence: CA)
  Receive Date: 20220810
  Receipt Date: 20220810
  Transmission Date: 20221026
  Serious: Yes (Hospitalization, Disabling, Other)
  Sender: FDA-Public Use
  Company Number: CA-PFIZER INC-002-0073-970004

PATIENT
  Age: 61 Year
  Sex: Male

DRUGS (6)
  1. DILANTIN [Interacting]
     Active Substance: PHENYTOIN
     Indication: Seizure
     Dosage: 300 - 600 MG DAILY
     Route: 048
  2. CIPROFLOXACIN HYDROCHLORIDE [Interacting]
     Active Substance: CIPROFLOXACIN HYDROCHLORIDE
     Indication: Lung abscess
     Dosage: TWICE PER DAY
     Route: 048
  3. PHENOBARBITAL [Concomitant]
     Active Substance: PHENOBARBITAL
     Dosage: 90 - 120 MG PER DAY
  4. PIMOZIDE [Concomitant]
     Active Substance: PIMOZIDE
     Dosage: 6 MG
  5. THIAMINE [Concomitant]
     Active Substance: THIAMINE
  6. CLINDAMYCIN [Concomitant]
     Active Substance: CLINDAMYCIN
     Dosage: 450 MG 4 PER DAY

REACTIONS (8)
  - Drug interaction [Recovered/Resolved]
  - Intentional overdose [Recovered/Resolved]
  - Fall [Recovered/Resolved]
  - Ataxia [Recovered/Resolved]
  - Seizure [Recovered/Resolved]
  - Fatigue [Recovered/Resolved]
  - Headache [Recovered/Resolved]
  - Asthenia [Recovered/Resolved]
